FAERS Safety Report 11096342 (Version 1)
Quarter: 2015Q2

REPORT INFORMATION
  Report Type: Spontaneous
  Country: US (occurrence: US)
  Receive Date: 20150507
  Receipt Date: 20150507
  Transmission Date: 20150821
  Serious: No
  Sender: FDA-Public Use
  Company Number: US-BIOGENIDEC-2015BI059407

PATIENT
  Sex: Female

DRUGS (13)
  1. BONIVA [Concomitant]
     Active Substance: IBANDRONATE SODIUM
  2. TECFIDERA [Suspect]
     Active Substance: DIMETHYL FUMARATE
     Indication: MULTIPLE SCLEROSIS
     Route: 048
  3. MYRBETRIQ [Concomitant]
     Active Substance: MIRABEGRON
  4. VITAMIN D3 [Concomitant]
     Active Substance: CHOLECALCIFEROL
  5. TIZANIDINE HCL [Concomitant]
     Active Substance: TIZANIDINE HYDROCHLORIDE
  6. CALCIUM 1000+D [Concomitant]
  7. MULTIVITAMIN [Concomitant]
     Active Substance: VITAMINS
  8. TYLENOL 8 HR [Concomitant]
     Active Substance: ACETAMINOPHEN
  9. AMPYRA [Concomitant]
     Active Substance: DALFAMPRIDINE
  10. ASPIRIN. [Concomitant]
     Active Substance: ASPIRIN
  11. B12-ACTIVE [Concomitant]
  12. BACLOFEN. [Concomitant]
     Active Substance: BACLOFEN
  13. VISION FORMULA/LUTEIN [Concomitant]

REACTIONS (2)
  - Flatulence [Unknown]
  - Flushing [Unknown]
